FAERS Safety Report 5990532-7 (Version None)
Quarter: 2008Q4

REPORT INFORMATION
  Report Type: 
  Country: None (occurrence: None)
  Receive Date: 20081202
  Receipt Date: 20071127
  Transmission Date: 20090506
  Serious: Yes (Other)
  Sender: FDA-Public Use
  Company Number: WAES 0709USA01025

PATIENT
  Age: 60 Year
  Sex: Female
  Weight: 83.0083 kg

DRUGS (5)
  1. FOSAMAX [Suspect]
     Indication: OSTEOPOROSIS
     Dosage: PO
     Route: 048
     Dates: start: 20020514, end: 20050414
  2. ACTONEL [Concomitant]
  3. LIPITOR [Concomitant]
  4. VIOXX [Concomitant]
  5. TRAZODONE HCL [Concomitant]

REACTIONS (10)
  - ACUTE PRERENAL FAILURE [None]
  - ANXIETY [None]
  - DEPRESSION [None]
  - EAR PAIN [None]
  - MICROALBUMINURIA [None]
  - MUSCLE SPASMS [None]
  - OBESITY [None]
  - OSTEOMYELITIS [None]
  - OSTEONECROSIS [None]
  - RENAL FAILURE CHRONIC [None]
